FAERS Safety Report 6862845-8 (Version None)
Quarter: 2010Q3

REPORT INFORMATION
  Report Type: 
  Country: None (occurrence: None)
  Receive Date: 20100721
  Receipt Date: 20100713
  Transmission Date: 20110219
  Serious: Yes (Hospitalization)
  Sender: FDA-Public Use
  Company Number: A0870210A

PATIENT
  Age: 60 Year
  Sex: Female

DRUGS (5)
  1. AVANDIA [Suspect]
     Route: 048
     Dates: start: 20080101
  2. HUMULIN R [Concomitant]
  3. LANTUS [Concomitant]
  4. GLUCOPHAGE [Concomitant]
  5. REZULIN [Concomitant]

REACTIONS (1)
  - RENAL FAILURE [None]
